FAERS Safety Report 9339708 (Version 7)
Quarter: 2014Q1

REPORT INFORMATION
  Report Type: Report from Study
  Country: AU (occurrence: AU)
  Receive Date: 20130610
  Receipt Date: 20140320
  Transmission Date: 20141002
  Serious: Yes (Other)
  Sender: FDA-Public Use
  Company Number: PHHY2013AU058038

PATIENT
  Age: 41 Year
  Sex: Male

DRUGS (2)
  1. CLOZARIL [Suspect]
     Dosage: 175 MG, UNK
     Dates: start: 20100523
  2. CLOZARIL [Suspect]
     Dosage: UNK UKN, UNK
     Dates: start: 20131020, end: 20140214

REACTIONS (4)
  - Neoplasm malignant [Unknown]
  - Central nervous system lymphoma [Unknown]
  - Neutropenia [Unknown]
  - Leukopenia [Unknown]
